FAERS Safety Report 6139411-5 (Version None)
Quarter: 2009Q2

REPORT INFORMATION
  Report Type: 
  Country: None (occurrence: None)
  Receive Date: 20090401
  Receipt Date: 20090318
  Transmission Date: 20091009
  Serious: Yes (Hospitalization)
  Sender: FDA-Public Use
  Company Number: JP-ROCHE-599525

PATIENT
  Sex: Male
  Weight: 79 kg

DRUGS (10)
  1. CELLCEPT [Suspect]
     Indication: PROPHYLAXIS AGAINST TRANSPLANT REJECTION
     Route: 048
     Dates: start: 19990922, end: 20080128
  2. PREDONINE [Suspect]
     Indication: PROPHYLAXIS AGAINST TRANSPLANT REJECTION
     Route: 048
     Dates: start: 19990922, end: 20080331
  3. NEORAL [Suspect]
     Indication: PROPHYLAXIS AGAINST TRANSPLANT REJECTION
     Route: 048
     Dates: start: 19990922, end: 20080331
  4. MEROPEN [Concomitant]
     Dosage: ROUTE REPORTED: INJECTABLE (NOT OTHERWISE SPECIFIED).
     Route: 050
  5. DIOVAN [Concomitant]
     Route: 048
     Dates: start: 20080122, end: 20080331
  6. NORVASC [Concomitant]
     Route: 048
     Dates: start: 20080122, end: 20080331
  7. URINORM [Concomitant]
     Route: 048
     Dates: start: 20080122, end: 20080331
  8. SODIUM BICARBONATE [Concomitant]
     Route: 048
     Dates: start: 20080122, end: 20080331
  9. BONALON [Concomitant]
     Dosage: DRUG REPORTED AS: BONALON 35 MG
     Route: 048
     Dates: start: 20080122, end: 20080331
  10. EPADEL [Concomitant]
     Route: 048
     Dates: start: 20080122, end: 20080331

REACTIONS (1)
  - SARCOIDOSIS [None]
